APPROVED DRUG PRODUCT: MYCOPHENOLATE MOFETIL
Active Ingredient: MYCOPHENOLATE MOFETIL
Strength: 200MG/ML
Dosage Form/Route: FOR SUSPENSION;ORAL
Application: A218227 | Product #001 | TE Code: AB
Applicant: AUROBINDO PHARMA LTD
Approved: Sep 26, 2024 | RLD: No | RS: No | Type: RX